FAERS Safety Report 24877125 (Version 1)
Quarter: 2025Q1

REPORT INFORMATION
  Report Type: Other
  Country: FR (occurrence: FR)
  Receive Date: 20250123
  Receipt Date: 20250123
  Transmission Date: 20250409
  Serious: Yes (Other)
  Sender: ZYDUS PHARM
  Company Number: None

PATIENT

DRUGS (1)
  1. LANSOPRAZOLE [Suspect]
     Active Substance: LANSOPRAZOLE
     Indication: Dyspepsia
     Route: 048
     Dates: start: 20241203

REACTIONS (1)
  - Lichen planus [Not Recovered/Not Resolved]

NARRATIVE: CASE EVENT DATE: 20241211
